FAERS Safety Report 13663832 (Version 1)
Quarter: 2017Q2

REPORT INFORMATION
  Report Type: Spontaneous
  Country: US (occurrence: US)
  Receive Date: 20170618
  Receipt Date: 20170618
  Transmission Date: 20170830
  Serious: Yes (Hospitalization)
  Sender: FDA-Public Use
  Company Number: None

PATIENT
  Age: 14 Month
  Sex: Female
  Weight: 50.39 kg

DRUGS (1)
  1. BASAGLAR [Suspect]
     Active Substance: INSULIN GLARGINE

REACTIONS (1)
  - Paralysis [None]

NARRATIVE: CASE EVENT DATE: 20170616
